FAERS Safety Report 9151290 (Version 1)
Quarter: 2013Q1

REPORT INFORMATION
  Report Type: Spontaneous
  Country: JP (occurrence: JP)
  Receive Date: 20130308
  Receipt Date: 20130308
  Transmission Date: 20140127
  Serious: Yes (Death)
  Sender: FDA-Public Use
  Company Number: JP-JNJFOC-20130304452

PATIENT
  Age: 81 Year
  Sex: Male
  Weight: 57 kg

DRUGS (6)
  1. XARELTO [Suspect]
     Indication: CEREBROVASCULAR ACCIDENT PROPHYLAXIS
     Route: 048
     Dates: start: 20120724, end: 20130112
  2. XARELTO [Suspect]
     Indication: ATRIAL FIBRILLATION
     Route: 048
     Dates: start: 20120724, end: 20130112
  3. IRBESARTAN [Concomitant]
     Indication: HYPERTENSION
     Route: 048
     Dates: start: 20120612, end: 20130112
  4. NEXIUM [Concomitant]
     Indication: GASTRITIS
     Route: 048
     Dates: start: 20120724, end: 20130112
  5. ADALAT CR [Concomitant]
     Indication: HYPERTENSION
     Route: 048
     Dates: end: 20130112
  6. MAINTATE [Concomitant]
     Indication: HYPERTENSION
     Route: 048
     Dates: start: 20120724, end: 20130112

REACTIONS (1)
  - Pneumonia [Fatal]
